FAERS Safety Report 7014496-2 (Version None)
Quarter: 2010Q3

REPORT INFORMATION
  Report Type: 
  Country: None (occurrence: None)
  Receive Date: 20100927
  Receipt Date: 20100916
  Transmission Date: 20110219
  Serious: Yes (Hospitalization)
  Sender: FDA-Public Use
  Company Number: FR-ASTRAZENECA-2010SE43556

PATIENT
  Age: 27244 Day
  Sex: Female

DRUGS (12)
  1. NEXIUM [Suspect]
     Route: 048
     Dates: start: 20100824, end: 20100824
  2. NEXIUM [Suspect]
     Route: 048
  3. TRAMADOL HCL [Suspect]
     Route: 048
     Dates: start: 20100824, end: 20100824
  4. NEURONTIN [Suspect]
     Route: 048
     Dates: start: 20100824, end: 20100824
  5. DIFFU K [Concomitant]
  6. LYRICA [Concomitant]
  7. IXPRIM [Concomitant]
  8. EFFEXOR [Concomitant]
  9. LEXOMIL [Concomitant]
  10. ZOLPIDEM TARTRATE [Concomitant]
  11. GUTRON [Concomitant]
  12. LASIX [Concomitant]

REACTIONS (3)
  - DISORIENTATION [None]
  - HALLUCINATION [None]
  - WRONG DRUG ADMINISTERED [None]
